FAERS Safety Report 16662405 (Version 3)
Quarter: 2019Q4

REPORT INFORMATION
  Report Type: Spontaneous
  Country: ZA (occurrence: ZA)
  Receive Date: 20190802
  Receipt Date: 20191008
  Transmission Date: 20200122
  Serious: Yes (Other)
  Sender: FDA-Public Use
  Company Number: ZA-SEPTODONT-201905407

PATIENT
  Age: 55 Year
  Sex: Female

DRUGS (3)
  1. SEPTANEST [Suspect]
     Active Substance: ARTICAINE HYDROCHLORIDE\EPINEPHRINE BITARTRATE
     Indication: DENTAL LOCAL ANAESTHESIA
     Dosage: UNKNOWN
     Route: 004
     Dates: start: 20190725
  2. UNKNOWN [Concomitant]
     Active Substance: UNSPECIFIED INGREDIENT
     Indication: HYPERTENSION
     Dosage: UNSPECIFIED
  3. ESTRADIOL 1MG ; DROSPIRENONE 2 MG [Concomitant]
     Indication: HORMONE REPLACEMENT THERAPY
     Dosage: 1 DF DAILY

REACTIONS (6)
  - Lip pain [Recovered/Resolved]
  - Lip swelling [Recovered/Resolved]
  - Gingival swelling [Recovered/Resolved]
  - Mouth ulceration [Recovered/Resolved]
  - Blister [Recovered/Resolved]
  - Gingival pain [Recovered/Resolved]
